FAERS Safety Report 12859163 (Version 2)
Quarter: 2016Q4

REPORT INFORMATION
  Report Type: Spontaneous
  Country: CZ (occurrence: CZ)
  Receive Date: 20161018
  Receipt Date: 20161228
  Transmission Date: 20170207
  Serious: Yes (Other)
  Sender: FDA-Public Use
  Company Number: CZ-TEVA-701433ROM

PATIENT
  Age: 61 Year
  Sex: Male

DRUGS (4)
  1. FENTANYL. [Suspect]
     Active Substance: FENTANYL
     Indication: PAIN
     Route: 062
  2. PREGABALIN. [Suspect]
     Active Substance: PREGABALIN
     Indication: PAIN
     Dosage: 150 MILLIGRAM DAILY;
     Route: 048
  3. MORPHINE [Suspect]
     Active Substance: MORPHINE
     Indication: PAIN
     Dosage: 300 MILLIGRAM DAILY;
  4. TRAZODON [Concomitant]
     Active Substance: TRAZODONE HYDROCHLORIDE
     Indication: SLEEP DISORDER
     Route: 048

REACTIONS (3)
  - Drug effect incomplete [Unknown]
  - Nausea [Unknown]
  - Altered state of consciousness [Unknown]
